FAERS Safety Report 21003389 (Version 1)
Quarter: 2022Q2

REPORT INFORMATION
  Report Type: Spontaneous
  Country: US (occurrence: None)
  Receive Date: 20220623
  Receipt Date: 20220623
  Transmission Date: 20220720
  Serious: Yes (Hospitalization)
  Sender: FDA-Public Use
  Company Number: None

PATIENT
  Age: 66 Year
  Sex: Female

DRUGS (10)
  1. CAPECITABINE [Suspect]
     Active Substance: CAPECITABINE
     Indication: Colon cancer
     Route: 048
     Dates: start: 20190720
  2. CETIRIZINE HCL [Concomitant]
  3. COLCHICINE CAP [Concomitant]
  4. FLUTICASONE SPR [Concomitant]
  5. ACETAMINOPHEN\HYDROCODONE [Concomitant]
     Active Substance: ACETAMINOPHEN\HYDROCODONE
  6. LYRICA [Concomitant]
     Active Substance: PREGABALIN
  7. MELOXICAM [Concomitant]
     Active Substance: MELOXICAM
  8. OMEPRAZOLE [Concomitant]
  9. OXBUTYNIN TAB [Concomitant]
  10. SYMBICORT AER [Concomitant]

REACTIONS (3)
  - Therapy interrupted [None]
  - Product use issue [None]
  - Myocardial infarction [None]

NARRATIVE: CASE EVENT DATE: 20220623
